FAERS Safety Report 8134283-1 (Version None)
Quarter: 2012Q1

REPORT INFORMATION
  Report Type: 
  Country: None (occurrence: None)
  Receive Date: 20120209
  Receipt Date: 20120130
  Transmission Date: 20120608
  Serious: Yes (Hospitalization, Disabling, Other)
  Sender: FDA-Public Use
  Company Number: 2012MA001505

PATIENT
  Sex: Female

DRUGS (1)
  1. METOCLOPRAMIDE [Suspect]
     Indication: PRODUCT USED FOR UNKNOWN INDICATION

REACTIONS (24)
  - PAIN [None]
  - NERVOUS SYSTEM DISORDER [None]
  - PRE-EXISTING DISEASE [None]
  - QUALITY OF LIFE DECREASED [None]
  - INCORRECT DRUG ADMINISTRATION DURATION [None]
  - MENTAL DISORDER [None]
  - CONDITION AGGRAVATED [None]
  - RESTLESS LEGS SYNDROME [None]
  - METABOLIC DISORDER [None]
  - ANHEDONIA [None]
  - ECONOMIC PROBLEM [None]
  - EXTRAPYRAMIDAL DISORDER [None]
  - DEPRESSION SUICIDAL [None]
  - AKATHISIA [None]
  - PARKINSON'S DISEASE [None]
  - EMOTIONAL DISTRESS [None]
  - DYSTONIA [None]
  - FAMILY STRESS [None]
  - VISUAL IMPAIRMENT [None]
  - ACTIVITIES OF DAILY LIVING IMPAIRED [None]
  - NEUROPATHY PERIPHERAL [None]
  - TARDIVE DYSKINESIA [None]
  - PRODUCT QUALITY ISSUE [None]
  - DEFORMITY [None]
